APPROVED DRUG PRODUCT: FLUCONAZOLE
Active Ingredient: FLUCONAZOLE
Strength: 200MG/5ML
Dosage Form/Route: FOR SUSPENSION;ORAL
Application: A215738 | Product #001 | TE Code: AB
Applicant: ZHEJIANG POLY PHARM CO LTD
Approved: Sep 21, 2023 | RLD: No | RS: No | Type: RX